FAERS Safety Report 11384629 (Version 1)
Quarter: 2015Q3

REPORT INFORMATION
  Report Type: Spontaneous
  Country: US (occurrence: US)
  Receive Date: 20150811
  Receipt Date: 20150811
  Transmission Date: 20151125
  Serious: No
  Sender: FDA-Public Use
  Company Number: US-ELI_LILLY_AND_COMPANY-US201104002863

PATIENT
  Sex: Male
  Weight: 77.1 kg

DRUGS (4)
  1. NIASPAN [Concomitant]
     Active Substance: NIACIN
  2. CIALIS [Suspect]
     Active Substance: TADALAFIL
     Dosage: 2.5 MG, QD
     Dates: start: 20110401
  3. SIMVASTATIN. [Concomitant]
     Active Substance: SIMVASTATIN
  4. CIALIS [Suspect]
     Active Substance: TADALAFIL
     Indication: ERECTILE DYSFUNCTION
     Dosage: 2.5 MG QD
     Dates: start: 20110329

REACTIONS (2)
  - Drug ineffective [Not Recovered/Not Resolved]
  - Wrong technique in product usage process [Unknown]
